FAERS Safety Report 5603611-0 (Version None)
Quarter: 2008Q1

REPORT INFORMATION
  Report Type: 
  Country: None (occurrence: None)
  Receive Date: 20080122
  Receipt Date: 20080109
  Transmission Date: 20080703
  Serious: Yes (Hospitalization)
  Sender: FDA-Public Use
  Company Number: 2008000078

PATIENT
  Age: 36 Year
  Sex: Female

DRUGS (2)
  1. TARCEVA [Suspect]
     Indication: PANCREATIC CARCINOMA
     Dosage: ORAL
     Route: 048
  2. CISPLATIN [Suspect]

REACTIONS (3)
  - NAUSEA [None]
  - NEUTROPENIA [None]
  - VOMITING [None]
